FAERS Safety Report 14528223 (Version 3)
Quarter: 2018Q2

REPORT INFORMATION
  Report Type: Report from Study
  Country: None (occurrence: CA)
  Receive Date: 20180214
  Receipt Date: 20180516
  Transmission Date: 20180711
  Serious: Yes (Hospitalization, Other)
  Sender: FDA-Public Use
  Company Number: CA-ABBVIE-18K-028-2252453-00

PATIENT
  Sex: Male

DRUGS (1)
  1. HUMIRA [Suspect]
     Active Substance: ADALIMUMAB
     Indication: CROHN^S DISEASE
     Route: 058
     Dates: start: 20171109, end: 20180125

REACTIONS (5)
  - Post procedural haemorrhage [Unknown]
  - Haematoma infection [Not Recovered/Not Resolved]
  - Gastrointestinal obstruction [Unknown]
  - Hernia [Unknown]
  - Crohn^s disease [Unknown]
